FAERS Safety Report 19169348 (Version 6)
Quarter: 2022Q1

REPORT INFORMATION
  Report Type: Spontaneous
  Country: IN (occurrence: IN)
  Receive Date: 20210422
  Receipt Date: 20220324
  Transmission Date: 20220424
  Serious: Yes (Other)
  Sender: FDA-Public Use
  Company Number: IN-PFIZER INC-2018384403

PATIENT
  Age: 56 Year
  Sex: Male
  Weight: 88 kg

DRUGS (7)
  1. SUTENT [Suspect]
     Active Substance: SUNITINIB MALATE
     Indication: Metastatic renal cell carcinoma
     Dosage: 50 MG, ONCE DAILY, 2WEEKS ON AND 1 WEEK OFF
     Route: 048
     Dates: start: 20180921
  2. ZOLEDRONIC ACID [Concomitant]
     Active Substance: ZOLEDRONIC ACID
     Dosage: 4 MG, EVERY 3 MONTHLY (4MG + 100ML NS IV OVER 30MIN EVERY 3 MONTHLY)
     Route: 042
  3. REDOTIL [Concomitant]
     Indication: Diarrhoea
     Dosage: 100 MG, 3X/DAY
     Route: 048
  4. COTARYL [Concomitant]
     Dosage: UNK, LOCAL APPLICATION ON HANDS AND FEET
     Route: 061
  5. BECOSULES [ASCORBIC ACID;VITAMIN B NOS] [Concomitant]
     Dosage: UNK, 1X/DAY
     Route: 048
  6. ECONORM [Concomitant]
     Dosage: UNK, 3X/DAY
     Route: 048
  7. MEGASTY [Concomitant]
     Dosage: UNK

REACTIONS (11)
  - Ascites [Unknown]
  - Hypothyroidism [Unknown]
  - Neoplasm progression [Unknown]
  - Rash [Unknown]
  - Back pain [Unknown]
  - Sciatica [Unknown]
  - Prostatic disorder [Unknown]
  - Sinusitis [Unknown]
  - Pleural effusion [Unknown]
  - Diarrhoea [Unknown]
  - Laboratory test abnormal [Unknown]

NARRATIVE: CASE EVENT DATE: 20210220
